FAERS Safety Report 15060110 (Version 1)
Quarter: 2018Q2

REPORT INFORMATION
  Report Type: Spontaneous
  Country: US (occurrence: US)
  Receive Date: 20180625
  Receipt Date: 20180625
  Transmission Date: 20180711
  Serious: No
  Sender: FDA-Public Use
  Company Number: US-BAYER-2018-113650

PATIENT
  Age: 62 Year
  Sex: Male
  Weight: 100 kg

DRUGS (6)
  1. ALEVE [Suspect]
     Active Substance: NAPROXEN SODIUM
     Indication: PAIN
     Dosage: UNK
     Dates: start: 2013
  2. PREDNISONE. [Concomitant]
     Active Substance: PREDNISONE
     Dosage: 1 DF, UNK
  3. ALEVE [Suspect]
     Active Substance: NAPROXEN SODIUM
     Indication: PAIN
     Dosage: 1 DF, UNK
     Route: 048
     Dates: start: 20180526, end: 20180526
  4. PREDNISONE. [Concomitant]
     Active Substance: PREDNISONE
     Dosage: 2 DF, UNK
  5. PREDNISONE. [Concomitant]
     Active Substance: PREDNISONE
     Dosage: 20 MG, UNK
     Route: 048
  6. PREDNISONE. [Concomitant]
     Active Substance: PREDNISONE
     Dosage: 3 DF, UNK

REACTIONS (9)
  - Chills [Unknown]
  - Oral mucosal blistering [Unknown]
  - Pain [Unknown]
  - Blister [None]
  - Hypersensitivity [Unknown]
  - Blister [Unknown]
  - Paraesthesia oral [Unknown]
  - Feeling abnormal [Recovered/Resolved]
  - Biopsy [Unknown]

NARRATIVE: CASE EVENT DATE: 2013
